FAERS Safety Report 9284539 (Version 1)
Quarter: 2013Q2

REPORT INFORMATION
  Report Type: Spontaneous
  Country: IT (occurrence: IT)
  Receive Date: 20130511
  Receipt Date: 20130511
  Transmission Date: 20140414
  Serious: Yes (Other)
  Sender: FDA-Public Use
  Company Number: IT-ROCHE-1221518

PATIENT
  Age: 15 Year
  Sex: Male

DRUGS (10)
  1. SAQUINAVIR [Suspect]
     Indication: HIV INFECTION
     Route: 065
  2. LAMIVUDINE [Suspect]
     Indication: HIV INFECTION
     Route: 065
  3. ATAZANAVIR [Suspect]
     Indication: HIV INFECTION
     Route: 065
  4. RITONAVIR [Suspect]
     Indication: HIV INFECTION
     Route: 065
  5. DARUNAVIR [Concomitant]
     Route: 065
  6. ETRAVIRINE [Concomitant]
     Route: 065
  7. IFOSFAMIDE [Concomitant]
     Route: 065
  8. CARBOPLATIN [Concomitant]
     Route: 065
  9. ETOPOSIDE [Concomitant]
     Route: 065
  10. RITUXIMAB [Concomitant]
     Route: 065

REACTIONS (1)
  - Gastrointestinal toxicity [Unknown]
